FAERS Safety Report 20769830 (Version 1)
Quarter: 2022Q2

REPORT INFORMATION
  Report Type: Spontaneous
  Country: US (occurrence: US)
  Receive Date: 20220429
  Receipt Date: 20220429
  Transmission Date: 20220721
  Serious: No
  Sender: FDA-Public Use
  Company Number: US-PFIZER INC-202200541543

PATIENT
  Age: 55 Year
  Sex: Female

DRUGS (7)
  1. IBRANCE [Suspect]
     Active Substance: PALBOCICLIB
     Dosage: 125 MG, CYCLIC (DAILY FOR 3 WEEKS ON AND 1 WEEK OFF)
     Route: 048
     Dates: start: 20220108
  2. COLLAGEN [Concomitant]
     Active Substance: COLLAGEN
     Dosage: UNK
  3. CHOLECALCIFEROL [Concomitant]
     Active Substance: CHOLECALCIFEROL
     Dosage: UNK
  4. ALEVE [Concomitant]
     Active Substance: NAPROXEN SODIUM
     Dosage: UNK
  5. TRAMADOL [Concomitant]
     Active Substance: TRAMADOL
     Dosage: UNK
  6. LETROZOLE [Concomitant]
     Active Substance: LETROZOLE
     Dosage: UNK
  7. ONDANSETRON [Concomitant]
     Active Substance: ONDANSETRON
     Dosage: UNK

REACTIONS (5)
  - Skin discolouration [Unknown]
  - Dry skin [Unknown]
  - Productive cough [Unknown]
  - Memory impairment [Unknown]
  - Product use issue [Unknown]

NARRATIVE: CASE EVENT DATE: 20220101
